FAERS Safety Report 8339624-8 (Version None)
Quarter: 2012Q2

REPORT INFORMATION
  Report Type: 
  Country: None (occurrence: None)
  Receive Date: 20120507
  Receipt Date: 20120428
  Transmission Date: 20120825
  Serious: Yes (Hospitalization, Other)
  Sender: FDA-Public Use
  Company Number: US-BAYER-2011-093545

PATIENT
  Age: 21 Year
  Sex: Female
  Weight: 54.422 kg

DRUGS (14)
  1. PROPOXYPHENE NAPSYLATE W/ ACETAMINOPHEN [Concomitant]
     Dosage: UNK
     Dates: start: 20091013, end: 20091019
  2. IBUPROFEN TABLETS [Concomitant]
     Indication: ANALGESIC THERAPY
     Dosage: 2 DAILY AS NEEDED
     Dates: start: 20090101
  3. NAPROXEN (ALEVE) [Concomitant]
     Indication: ANALGESIC THERAPY
     Dosage: 2 DAILY AS NEEDED
     Dates: start: 20090101
  4. CIPROFLOXACIN [Concomitant]
     Dosage: UNK
     Dates: start: 20091013
  5. FLUVIRIN [Concomitant]
     Dosage: 5 ML, UNK
     Dates: start: 20090914
  6. PROMETHAZINE [Concomitant]
     Dosage: 25 MG, UNK
     Dates: start: 20091002
  7. YASMIN [Suspect]
     Indication: DYSMENORRHOEA
  8. DROSPIRENONE AND ETHINYL ESTRADIOL [Suspect]
     Indication: OVARIAN CYST
     Route: 048
     Dates: start: 20060101, end: 20100801
  9. DEXTROAMPHETAMINE [Concomitant]
     Dosage: 20 MG, UNK
     Dates: start: 20090909, end: 20091021
  10. YASMIN [Suspect]
     Indication: OVARIAN CYST
     Route: 048
     Dates: start: 20060101, end: 20100801
  11. YASMIN [Suspect]
     Indication: ACNE
  12. AMOXICILLIN [Concomitant]
     Dosage: 500 MG, UNK
     Dates: start: 20091001
  13. ADDERALL 5 [Concomitant]
     Indication: ATTENTION DEFICIT/HYPERACTIVITY DISORDER
     Dosage: UNK
     Dates: start: 20060301
  14. PROMETHAZINE [Concomitant]
     Dosage: 25 MG, UNK
     Dates: start: 20091024

REACTIONS (9)
  - CHOLELITHIASIS [None]
  - CHOLECYSTITIS CHRONIC [None]
  - EMOTIONAL DISTRESS [None]
  - ANHEDONIA [None]
  - GENERAL PHYSICAL HEALTH DETERIORATION [None]
  - INJURY [None]
  - GALLBLADDER DISORDER [None]
  - ANXIETY [None]
  - PAIN [None]
